FAERS Safety Report 18202389 (Version 1)
Quarter: 2020Q3

REPORT INFORMATION
  Report Type: Spontaneous
  Country: US (occurrence: US)
  Receive Date: 20200827
  Receipt Date: 20200827
  Transmission Date: 20201103
  Serious: Yes (Other)
  Sender: FDA-Public Use
  Company Number: None

PATIENT
  Age: 40 Year
  Sex: Female
  Weight: 90 kg

DRUGS (9)
  1. VENLAFAXINE [Concomitant]
     Active Substance: VENLAFAXINE HYDROCHLORIDE
  2. ZOFRAN [Concomitant]
     Active Substance: ONDANSETRON HYDROCHLORIDE
  3. LEVOTHYROXINE. [Concomitant]
     Active Substance: LEVOTHYROXINE
  4. EMGALITY [Suspect]
     Active Substance: GALCANEZUMAB-GNLM
     Indication: MIGRAINE
     Dosage: ?          QUANTITY:2 INJECTION(S);OTHER FREQUENCY:ONCE A MONTH;?
     Route: 030
     Dates: start: 20200818, end: 20200818
  5. FAMOTIDINE. [Concomitant]
     Active Substance: FAMOTIDINE
  6. LORAZEPAM. [Concomitant]
     Active Substance: LORAZEPAM
  7. BOTOX [Concomitant]
     Active Substance: ONABOTULINUMTOXINA
  8. CLARITIN [Concomitant]
     Active Substance: LORATADINE
  9. VITAMIN D [Concomitant]
     Active Substance: VITAMIN D NOS

REACTIONS (4)
  - Arthralgia [None]
  - Pruritus [None]
  - Insomnia [None]
  - Migraine [None]

NARRATIVE: CASE EVENT DATE: 20200820
